FAERS Safety Report 22516502 (Version 1)
Quarter: 2023Q2

REPORT INFORMATION
  Report Type: Spontaneous
  Country: IR (occurrence: IR)
  Receive Date: 20230603
  Receipt Date: 20230603
  Transmission Date: 20230722
  Serious: Yes (Hospitalization, Other)
  Sender: FDA-Public Use
  Company Number: IR-LEADINGPHARMA-IR-2023LEALIT00145

PATIENT
  Age: 25 Year
  Sex: Male

DRUGS (5)
  1. LIDOCAINE [Suspect]
     Active Substance: LIDOCAINE
     Indication: Genital pain
     Dosage: 70  G/10  G
     Route: 065
  2. LIDOCAINE [Suspect]
     Active Substance: LIDOCAINE
     Indication: Pruritus genital
  3. BENZOCAINE [Suspect]
     Active Substance: BENZOCAINE
     Indication: Genital pain
     Dosage: 60 G/10 G
     Route: 065
  4. BENZOCAINE [Suspect]
     Active Substance: BENZOCAINE
     Indication: Pruritus genital
  5. PODOPHYLLIN [PODOPHYLLUM PELTATUM RESIN] [Concomitant]
     Indication: Product used for unknown indication
     Route: 065

REACTIONS (3)
  - Haemolysis [Recovered/Resolved]
  - Methaemoglobinaemia [Recovered/Resolved]
  - Overdose [Unknown]
